FAERS Safety Report 9809023 (Version 2)
Quarter: 2014Q1

REPORT INFORMATION
  Report Type: Spontaneous
  Country: FR (occurrence: FR)
  Receive Date: 20140110
  Receipt Date: 20140117
  Transmission Date: 20141002
  Serious: Yes (Hospitalization)
  Sender: FDA-Public Use
  Company Number: FR-GLAXOSMITHKLINE-B0957260A

PATIENT
  Age: 91 Year
  Sex: Female

DRUGS (15)
  1. ARIXTRA [Suspect]
     Indication: THROMBOSIS PROPHYLAXIS
     Dosage: 5MG PER DAY
     Route: 058
     Dates: start: 20131119, end: 20131212
  2. PLAVIX [Suspect]
     Indication: THROMBOSIS PROPHYLAXIS
     Dosage: 75MG PER DAY
     Route: 048
     Dates: end: 20131212
  3. SEROPLEX [Suspect]
     Indication: MENTAL DISORDER
     Dosage: 10MG PER DAY
     Route: 048
  4. CELLUVISC [Concomitant]
     Route: 047
  5. CORDARONE [Concomitant]
     Route: 048
  6. TARDYFERON [Concomitant]
  7. ALPRAZOLAM [Concomitant]
  8. AMLOR [Concomitant]
  9. CETIRIZINE DICHLORHYDRATE [Concomitant]
  10. MESTINON [Concomitant]
  11. EBIXA [Concomitant]
  12. FURADANTINE [Concomitant]
  13. DAFALGAN [Concomitant]
  14. TRANSIPEG [Concomitant]
  15. INEXIUM [Concomitant]
     Route: 048

REACTIONS (7)
  - Haematoma [Recovering/Resolving]
  - Ecchymosis [Recovering/Resolving]
  - Anaemia [Recovered/Resolved]
  - Fatigue [Recovered/Resolved]
  - Dyspnoea [Recovered/Resolved]
  - Drug interaction [Unknown]
  - Incorrect dose administered [Unknown]
